FAERS Safety Report 16640457 (Version 1)
Quarter: 2019Q3

REPORT INFORMATION
  Report Type: Spontaneous
  Country: ES (occurrence: ES)
  Receive Date: 20190729
  Receipt Date: 20190729
  Transmission Date: 20191004
  Serious: Yes (Death, Hospitalization, Other)
  Sender: FDA-Public Use
  Company Number: ES-UCBSA-2019028466

PATIENT
  Age: 70 Year
  Sex: Male

DRUGS (1)
  1. CIMZIA [Suspect]
     Active Substance: CERTOLIZUMAB PEGOL
     Indication: SPONDYLITIS
     Dosage: UNK
     Route: 058
     Dates: start: 20190617

REACTIONS (2)
  - Cardiac failure [Unknown]
  - Death [Fatal]

NARRATIVE: CASE EVENT DATE: 201906
